FAERS Safety Report 8620065-0 (Version None)
Quarter: 2012Q3

REPORT INFORMATION
  Report Type: 
  Country: None (occurrence: None)
  Receive Date: 20120824
  Receipt Date: 20120822
  Transmission Date: 20120928
  Serious: Yes (Death, Life-Threatening, Hospitalization, Other)
  Sender: FDA-Public Use
  Company Number: ES-JNJFOC-20120610189

PATIENT
  Sex: Male

DRUGS (3)
  1. ZYTIGA [Suspect]
     Indication: PROSTATE CANCER
     Route: 048
     Dates: start: 20120605, end: 20120706
  2. ZYTIGA [Suspect]
     Route: 048
     Dates: start: 20120316, end: 20120605
  3. SINTROM [Concomitant]
     Indication: PRODUCT USED FOR UNKNOWN INDICATION

REACTIONS (9)
  - DEATH [None]
  - THROMBOCYTOPENIA [None]
  - PETECHIAE [None]
  - PROSTATE CANCER [None]
  - MULTI-ORGAN FAILURE [None]
  - HAEMATURIA [None]
  - NEUTROPENIA [None]
  - RENAL FAILURE [None]
  - SEPSIS [None]
